FAERS Safety Report 22058585 (Version 1)
Quarter: 2023Q1

REPORT INFORMATION
  Report Type: Spontaneous
  Country: US (occurrence: None)
  Receive Date: 20230302
  Receipt Date: 20230302
  Transmission Date: 20230417
  Serious: Yes (Other)
  Sender: FDA-Public Use
  Company Number: None

PATIENT
  Age: 28 Year
  Sex: Female

DRUGS (4)
  1. HYDROXYCHLOROQUINE [Suspect]
     Active Substance: HYDROXYCHLOROQUINE
     Indication: Urticarial vasculitis
     Route: 065
  2. PREDNISONE [Suspect]
     Active Substance: PREDNISONE
     Indication: Urticarial vasculitis
     Route: 065
  3. COLCHICINE [Suspect]
     Active Substance: COLCHICINE
  4. DAPSONE [Suspect]
     Active Substance: DAPSONE

REACTIONS (5)
  - Drug ineffective [None]
  - Pulmonary vasculitis [None]
  - Pericarditis [None]
  - Episcleritis [None]
  - Therapy cessation [None]
